FAERS Safety Report 14681629 (Version 6)
Quarter: 2020Q1

REPORT INFORMATION
  Report Type: Spontaneous
  Country: US (occurrence: US)
  Receive Date: 20180326
  Receipt Date: 20200228
  Transmission Date: 20200409
  Serious: Yes (Hospitalization, Other)
  Sender: FDA-Public Use
  Company Number: US-PFIZER INC-2018121342

PATIENT
  Age: 79 Year
  Sex: Female
  Weight: 81 kg

DRUGS (2)
  1. PRISTIQ EXTENDED-RELEASE [Suspect]
     Active Substance: DESVENLAFAXINE SUCCINATE
     Indication: DEPRESSION
  2. PRISTIQ EXTENDED-RELEASE [Suspect]
     Active Substance: DESVENLAFAXINE SUCCINATE
     Indication: INSOMNIA
     Dosage: 100 MG, 1X/DAY (1 TABLET BY MOUTH ONCE A DAY AT NIGHT)
     Route: 048

REACTIONS (18)
  - Dizziness [Not Recovered/Not Resolved]
  - Morbid thoughts [Recovered/Resolved]
  - Impaired driving ability [Unknown]
  - Suicidal ideation [Unknown]
  - Gait disturbance [Not Recovered/Not Resolved]
  - Memory impairment [Not Recovered/Not Resolved]
  - Hallucination [Recovered/Resolved]
  - Nightmare [Not Recovered/Not Resolved]
  - Facial bones fracture [Unknown]
  - Impaired work ability [Unknown]
  - Pain [Unknown]
  - Concussion [Unknown]
  - Rib fracture [Unknown]
  - Tremor [Not Recovered/Not Resolved]
  - Visual impairment [Unknown]
  - Fall [Unknown]
  - Multiple injuries [Unknown]
  - Confusional state [Not Recovered/Not Resolved]

NARRATIVE: CASE EVENT DATE: 201807
